FAERS Safety Report 18038733 (Version 3)
Quarter: 2020Q3

REPORT INFORMATION
  Report Type: Spontaneous
  Country: JP (occurrence: JP)
  Receive Date: 20200717
  Receipt Date: 20200909
  Transmission Date: 20201103
  Serious: Yes (Hospitalization, Other)
  Sender: FDA-Public Use
  Company Number: JP-MACLEODS PHARMACEUTICALS US LTD-MAC2020027315

PATIENT

DRUGS (2)
  1. QUETIAPINE. [Suspect]
     Active Substance: QUETIAPINE
     Indication: MAJOR DEPRESSION
     Dosage: 200 MILLIGRAM, QD, ADDITION OF 50 MG
     Route: 065
  2. QUETIAPINE. [Suspect]
     Active Substance: QUETIAPINE
     Dosage: 150 MILLIGRAM, QD,
     Route: 065

REACTIONS (5)
  - Weight increased [Unknown]
  - Idiopathic intracranial hypertension [Recovering/Resolving]
  - Diplopia [Recovered/Resolved]
  - VIth nerve paralysis [Recovering/Resolving]
  - Papilloedema [Unknown]
